FAERS Safety Report 6774328-4 (Version None)
Quarter: 2010Q2

REPORT INFORMATION
  Report Type: 
  Country: None (occurrence: None)
  Receive Date: 20100617
  Receipt Date: 20100607
  Transmission Date: 20101027
  Serious: Yes (Other)
  Sender: FDA-Public Use
  Company Number: GB-JNJFOC-20100604427

PATIENT
  Age: 84 Year
  Sex: Male

DRUGS (8)
  1. IMODIUM A-D [Suspect]
     Route: 048
  2. IMODIUM A-D [Suspect]
     Indication: ILL-DEFINED DISORDER
     Dosage: 2 MG FOUR TIMES DAILY
     Route: 048
  3. ARTHROTEC [Suspect]
     Indication: ARTHRITIS
     Route: 048
  4. LISINOPRIL [Suspect]
     Indication: BLOOD PRESSURE INCREASED
     Route: 048
  5. FUROSEMIDE [Concomitant]
     Dosage: EVERY MORNING
     Route: 065
  6. SENNA [Concomitant]
     Dosage: AT NIGHT
     Route: 065
  7. PHENYTOIN [Concomitant]
     Route: 065
  8. PHENOBARBITAL TAB [Concomitant]
     Route: 065

REACTIONS (3)
  - BLOOD POTASSIUM INCREASED [None]
  - CONSTIPATION [None]
  - INAPPROPRIATE SCHEDULE OF DRUG ADMINISTRATION [None]
